FAERS Safety Report 14418114 (Version 3)
Quarter: 2019Q1

REPORT INFORMATION
  Report Type: Spontaneous
  Country: US (occurrence: US)
  Receive Date: 20180122
  Receipt Date: 20190221
  Transmission Date: 20190417
  Serious: Yes (Hospitalization, Other)
  Sender: FDA-Public Use
  Company Number: US-IMPAX LABORATORIES, INC-2018-IPXL-00181

PATIENT
  Age: 57 Year
  Sex: Female

DRUGS (1)
  1. RYTARY [Suspect]
     Active Substance: CARBIDOPA\LEVODOPA
     Indication: PARKINSON^S DISEASE
     Dosage: 3 DOSAGE FORM, 3 /DAY
     Route: 048

REACTIONS (3)
  - Joint destruction [Recovered/Resolved]
  - Uterine prolapse [Recovered/Resolved]
  - Spinal compression fracture [Unknown]

NARRATIVE: CASE EVENT DATE: 20161214
